FAERS Safety Report 13805091 (Version 1)
Quarter: 2017Q3

REPORT INFORMATION
  Report Type: Spontaneous
  Country: US (occurrence: US)
  Receive Date: 20170728
  Receipt Date: 20170728
  Transmission Date: 20171127
  Serious: Yes (Other)
  Sender: FDA-Public Use
  Company Number: US-TEVA-791030ACC

PATIENT
  Sex: Female
  Weight: 54.48 kg

DRUGS (3)
  1. ZYRTEC [Concomitant]
     Active Substance: CETIRIZINE HYDROCHLORIDE
     Indication: HYPERSENSITIVITY
  2. SERTRALINE [Concomitant]
     Active Substance: SERTRALINE HYDROCHLORIDE
     Indication: DEPRESSION
  3. PARAGARD T 380A [Suspect]
     Active Substance: COPPER
     Indication: CONTRACEPTION
     Dates: start: 20140806, end: 20170424

REACTIONS (5)
  - Fungal infection [Recovered/Resolved]
  - Purulent discharge [Recovered/Resolved]
  - Cerebral cyst [Unknown]
  - Vaginal discharge [Recovered/Resolved]
  - Pruritus [Recovered/Resolved]
